FAERS Safety Report 10703865 (Version 1)
Quarter: 2015Q1

REPORT INFORMATION
  Report Type: Spontaneous
  Country: US (occurrence: None)
  Receive Date: 20150108
  Receipt Date: 20150108
  Transmission Date: 20150721
  Serious: Yes (Death)
  Sender: FDA-Public Use
  Company Number: INS201412-000335

PATIENT
  Age: 70 Year
  Sex: Female
  Weight: 38.55 kg

DRUGS (12)
  1. CARBOPLATIN. [Concomitant]
     Active Substance: CARBOPLATIN
  2. GEMCITABINE [Concomitant]
     Active Substance: GEMCITABINE\GEMCITABINE HYDROCHLORIDE
  3. MS CONTIN [Concomitant]
     Active Substance: MORPHINE SULFATE
  4. POTASSIUM CHLORIDE. [Concomitant]
     Active Substance: POTASSIUM CHLORIDE
  5. VITAMIN D2 [Concomitant]
     Active Substance: ERGOCALCIFEROL
  6. DARBEPOETIN [Concomitant]
     Active Substance: DARBEPOETIN ALFA
  7. SUBSYS [Suspect]
     Active Substance: FENTANYL
     Indication: BREAKTHROUGH PAIN
     Route: 060
     Dates: start: 20130122
  8. COMPLEX B [Concomitant]
     Active Substance: CALCIUM PANTOTHENATE\CYANOCOBALAMIN\NIACINAMIDE\PYRIDOXINE HYDROCHLORIDE\RIBOFLAVIN\THIAMINE MONONITRATE
  9. SENNA PLUS [Concomitant]
     Active Substance: DOCUSATE SODIUM\SENNOSIDES\SENNOSIDES A AND B
  10. PACLITAXEL. [Concomitant]
     Active Substance: PACLITAXEL
  11. LISINOPRIL. [Concomitant]
     Active Substance: LISINOPRIL
  12. OXYCODONE HYDROCHLORIDE. [Concomitant]
     Active Substance: OXYCODONE HYDROCHLORIDE

REACTIONS (8)
  - Skin cancer [None]
  - Malignant neoplasm progression [None]
  - White blood cell count decreased [None]
  - Blood calcium decreased [None]
  - Anaemia [None]
  - Blood glucose increased [None]
  - Blood phosphorus decreased [None]
  - Non-small cell lung cancer [None]

NARRATIVE: CASE EVENT DATE: 20130423
